FAERS Safety Report 10220624 (Version 1)
Quarter: 2014Q2

REPORT INFORMATION
  Report Type: Report from Study
  Country: ES (occurrence: ES)
  Receive Date: 20140606
  Receipt Date: 20140606
  Transmission Date: 20141212
  Serious: Yes (Hospitalization, Other)
  Sender: FDA-Public Use
  Company Number: ES-ROCHE-1408764

PATIENT
  Age: 31 Year
  Sex: Female

DRUGS (9)
  1. MYCOPHENOLATE MOFETIL [Suspect]
     Indication: PRODUCT USED FOR UNKNOWN INDICATION
     Route: 065
  2. TACROLIMUS [Concomitant]
  3. PREDNISONE [Concomitant]
  4. POSACONAZOLE [Concomitant]
  5. VALGANCICLOVIR [Concomitant]
     Route: 065
  6. FUROSEMIDE [Concomitant]
  7. TMP - SULFAMETHOXAZOLE [Concomitant]
  8. IPRATROPIUM BROMIDE [Concomitant]
  9. INSULIN [Concomitant]

REACTIONS (4)
  - Subileus [Unknown]
  - Hypoglycaemia [Unknown]
  - Lung transplant rejection [Not Recovered/Not Resolved]
  - Respiratory tract infection [Unknown]
